FAERS Safety Report 20322228 (Version 1)
Quarter: 2022Q1

REPORT INFORMATION
  Report Type: Spontaneous
  Country: US (occurrence: None)
  Receive Date: 20220110
  Receipt Date: 20220110
  Transmission Date: 20220424
  Serious: Yes (Hospitalization)
  Sender: FDA-Public Use
  Company Number: None

PATIENT
  Age: 25 Year
  Sex: Female
  Weight: 127 kg

DRUGS (2)
  1. BAMLANIVIMAB [Suspect]
     Active Substance: BAMLANIVIMAB
     Indication: COVID-19
     Dosage: OTHER FREQUENCY : ONCE;?
     Route: 041
  2. ETESEVIMAB [Suspect]
     Active Substance: ETESEVIMAB
     Indication: COVID-19
     Dosage: OTHER FREQUENCY : ONCE;?
     Route: 041
     Dates: start: 20211230, end: 20211230

REACTIONS (9)
  - Dyspnoea [None]
  - Chest pain [None]
  - Infusion related reaction [None]
  - Hyperventilation [None]
  - Erythema [None]
  - Flushing [None]
  - Bronchospasm [None]
  - Maternal exposure during pregnancy [None]
  - Abdominal pain upper [None]

NARRATIVE: CASE EVENT DATE: 20211230
